FAERS Safety Report 6336490-7 (Version None)
Quarter: 2009Q3

REPORT INFORMATION
  Report Type: 
  Country: None (occurrence: None)
  Receive Date: 20090901
  Receipt Date: 20090825
  Transmission Date: 20100115
  Serious: Yes (Hospitalization)
  Sender: FDA-Public Use
  Company Number: B0590553A

PATIENT
  Sex: Female

DRUGS (2)
  1. VALTREX [Suspect]
     Indication: HERPES ZOSTER
     Dosage: 1000MG THREE TIMES PER DAY
     Route: 048
     Dates: start: 20090817, end: 20090823
  2. LOXONIN [Concomitant]
     Dosage: 60MG THREE TIMES PER DAY
     Route: 048
     Dates: start: 20090817, end: 20090823

REACTIONS (4)
  - ALTERED STATE OF CONSCIOUSNESS [None]
  - ENCEPHALOPATHY [None]
  - GAIT DISTURBANCE [None]
  - RENAL FAILURE ACUTE [None]
